FAERS Safety Report 9421099 (Version 1)
Quarter: 2013Q3

REPORT INFORMATION
  Report Type: Report from Study
  Country: US (occurrence: US)
  Receive Date: 20130725
  Receipt Date: 20130725
  Transmission Date: 20140515
  Serious: Yes (Hospitalization)
  Sender: FDA-Public Use
  Company Number: US-TEVA-420835USA

PATIENT
  Age: 8 Month
  Sex: Female
  Weight: 7.52 kg

DRUGS (18)
  1. LESTAURTINIB [Suspect]
     Indication: ACUTE LYMPHOCYTIC LEUKAEMIA
     Dates: start: 20121206
  2. CYTARABINE [Suspect]
     Indication: ACUTE LYMPHOCYTIC LEUKAEMIA
     Route: 037
     Dates: start: 20121206
  3. DEXAMETHASONE [Suspect]
     Indication: ACUTE LYMPHOCYTIC LEUKAEMIA
     Dates: start: 20121206
  4. HYDROCORTISONE [Suspect]
     Indication: ACUTE LYMPHOCYTIC LEUKAEMIA
     Route: 037
     Dates: start: 20121206
  5. MERCAPTOPURINE [Suspect]
     Indication: ACUTE LYMPHOCYTIC LEUKAEMIA
     Dates: start: 20121206
  6. METHOTREXATE [Suspect]
     Indication: ACUTE LYMPHOCYTIC LEUKAEMIA
     Dates: start: 20121206
  7. VINCRISTINE [Suspect]
     Indication: ACUTE LYMPHOCYTIC LEUKAEMIA
     Dates: start: 20121206
  8. BACTRIM [Suspect]
  9. REGLAN [Concomitant]
  10. ZANTAC [Concomitant]
  11. ACETAMINOPHEN [Concomitant]
  12. BENADRYL [Concomitant]
  13. CEFTRIAXONE [Concomitant]
  14. FUROSEMIDE [Concomitant]
  15. PIPERACILLIN W/TAZOBACTAM [Concomitant]
  16. PROPOFOL [Concomitant]
  17. SIMETHICONE [Concomitant]
  18. ZOFRAN [Concomitant]

REACTIONS (1)
  - Febrile neutropenia [Recovered/Resolved]
